FAERS Safety Report 4973962-1 (Version None)
Quarter: 2006Q2

REPORT INFORMATION
  Report Type: 
  Country: None (occurrence: None)
  Receive Date: 20060417
  Receipt Date: 20060320
  Transmission Date: 20061013
  Serious: Yes (Disabling, Other)
  Sender: FDA-Public Use
  Company Number: 2006CG00544

PATIENT
  Age: 18218 Day
  Sex: Female
  Weight: 60 kg

DRUGS (2)
  1. ARIMIDEX [Suspect]
     Indication: BREAST CANCER
     Route: 048
     Dates: start: 20040601, end: 20060319
  2. IXPRIM [Concomitant]

REACTIONS (10)
  - BACK PAIN [None]
  - BLOOD ALKALINE PHOSPHATASE INCREASED [None]
  - GAMMA-GLUTAMYLTRANSFERASE INCREASED [None]
  - HOT FLUSH [None]
  - INTERVERTEBRAL DISC PROTRUSION [None]
  - JOINT ANKYLOSIS [None]
  - JOINT INSTABILITY [None]
  - JOINT STIFFNESS [None]
  - SCIATICA [None]
  - VOMITING [None]
